FAERS Safety Report 12862919 (Version 4)
Quarter: 2018Q1

REPORT INFORMATION
  Report Type: Report from Study
  Country: CR (occurrence: CR)
  Receive Date: 20161019
  Receipt Date: 20180329
  Transmission Date: 20180508
  Serious: Yes (Other)
  Sender: FDA-Public Use
  Company Number: PHHY2016CR142105

PATIENT
  Sex: Female

DRUGS (5)
  1. IRBESARTAN. [Concomitant]
     Active Substance: IRBESARTAN
     Indication: PRODUCT USED FOR UNKNOWN INDICATION
     Dosage: UNK
     Route: 065
     Dates: start: 2014
  2. CAPECITABINE. [Suspect]
     Active Substance: CAPECITABINE
     Indication: METASTASES TO LUNG
     Dosage: 1000 MG IN THE MORNING AND 500 MG AT NIGHT
     Route: 065
  3. GLIBENCLAMIDE [Concomitant]
     Active Substance: GLYBURIDE
     Indication: PRODUCT USED FOR UNKNOWN INDICATION
     Dosage: UNK
     Route: 065
     Dates: start: 2014
  4. TEMOZOLOMIDE. [Concomitant]
     Active Substance: TEMOZOLOMIDE
     Indication: PRODUCT USED FOR UNKNOWN INDICATION
     Dosage: 3 X 100MG AND 3 X 200 MG, QD
     Route: 065
     Dates: start: 2015
  5. SANDOSTATIN LAR DEPOT [Suspect]
     Active Substance: OCTREOTIDE ACETATE
     Indication: METASTASES TO LUNG
     Dosage: 30 MG, EVERY 4 WEEKS
     Route: 030
     Dates: start: 2015

REACTIONS (14)
  - Choking [Unknown]
  - Cough [Not Recovered/Not Resolved]
  - Tongue blistering [Not Recovered/Not Resolved]
  - Tongue haemorrhage [Unknown]
  - Oropharyngeal pain [Not Recovered/Not Resolved]
  - Toxicity to various agents [Recovered/Resolved]
  - Fatigue [Not Recovered/Not Resolved]
  - Anxiety [Unknown]
  - Vomiting [Not Recovered/Not Resolved]
  - Productive cough [Unknown]
  - Malaise [Unknown]
  - Nasopharyngitis [Unknown]
  - Platelet count decreased [Recovered/Resolved]
  - Product use in unapproved indication [Unknown]
